FAERS Safety Report 7309433-7 (Version None)
Quarter: 2011Q1

REPORT INFORMATION
  Report Type: 
  Country: None (occurrence: None)
  Receive Date: 20110223
  Receipt Date: 20110216
  Transmission Date: 20110831
  Serious: Yes (Hospitalization)
  Sender: FDA-Public Use
  Company Number: US-US-EMD SERONO, INC.-238216K09USA

PATIENT
  Sex: Female

DRUGS (2)
  1. UNSPECIFIED INTRAVENOUS STEROIDS [Concomitant]
     Indication: EYE DISORDER
     Route: 042
     Dates: start: 20090701
  2. REBIF [Suspect]
     Indication: MULTIPLE SCLEROSIS
     Route: 058
     Dates: start: 20071103

REACTIONS (2)
  - SPINAL COLUMN INJURY [None]
  - INTERVERTEBRAL DISC DEGENERATION [None]
